FAERS Safety Report 16136174 (Version 1)
Quarter: 2019Q1

REPORT INFORMATION
  Report Type: Spontaneous
  Country: NL (occurrence: ES)
  Receive Date: 20190329
  Receipt Date: 20190329
  Transmission Date: 20190418
  Serious: Yes (Death)
  Sender: FDA-Public Use
  Company Number: ES-FRESENIUS KABI-FK201903200

PATIENT
  Age: 64 Year
  Sex: Male

DRUGS (1)
  1. IRINOTECAN (MANUFACTURER UNKNOWN) [Suspect]
     Active Substance: IRINOTECAN
     Indication: COLORECTAL CANCER METASTATIC
     Dosage: 253.2 MG, FORTNIGHTLY
     Route: 042
     Dates: start: 20181218, end: 20190124

REACTIONS (2)
  - Vomiting [Fatal]
  - Diarrhoea [Fatal]

NARRATIVE: CASE EVENT DATE: 20190204
